FAERS Safety Report 8019295-0 (Version None)
Quarter: 2012Q1

REPORT INFORMATION
  Report Type: 
  Country: None (occurrence: None)
  Receive Date: 20120103
  Receipt Date: 20111223
  Transmission Date: 20120608
  Serious: Yes (Hospitalization, Other)
  Sender: FDA-Public Use
  Company Number: KR-ELI_LILLY_AND_COMPANY-KR201109007695

PATIENT
  Age: 61 Year
  Sex: Male

DRUGS (2)
  1. HUMALOG MIX 50/50 [Suspect]
     Indication: TYPE 2 DIABETES MELLITUS
     Dosage: UNK
     Route: 058
     Dates: start: 20110601
  2. HUMALOG MIX 50/50 [Suspect]
     Dosage: UNK
     Route: 058
     Dates: start: 20110601

REACTIONS (3)
  - ASTHENIA [None]
  - ANAEMIA [None]
  - DIZZINESS [None]
